FAERS Safety Report 6747140-X (Version None)
Quarter: 2010Q2

REPORT INFORMATION
  Report Type: 
  Country: None (occurrence: None)
  Receive Date: 20100528
  Receipt Date: 20100519
  Transmission Date: 20101027
  Serious: Yes (Other)
  Sender: FDA-Public Use
  Company Number: US-CELGENEUS-163-21880-10051691

PATIENT
  Age: 61 Year
  Sex: Male
  Weight: 93.9 kg

DRUGS (1)
  1. REVLIMID [Suspect]
     Route: 048
     Dates: start: 20100405, end: 20100425

REACTIONS (1)
  - HYPOPHOSPHATAEMIA [None]
